FAERS Safety Report 8056056-0 (Version None)
Quarter: 2012Q1

REPORT INFORMATION
  Report Type: 
  Country: None (occurrence: None)
  Receive Date: 20120119
  Receipt Date: 20111005
  Transmission Date: 20120608
  Serious: No
  Sender: FDA-Public Use
  Company Number: US-BAUSCH-2011BL006824

PATIENT
  Age: 72 Year
  Sex: Female

DRUGS (8)
  1. AVAPRO [Concomitant]
  2. VITAMIN D [Concomitant]
  3. METFORMIN HCL [Concomitant]
  4. ACETYLSALICYLIC ACID SRT [Concomitant]
  5. MULTI-VITAMINS [Concomitant]
  6. CALCIUM [Concomitant]
  7. LATANOPROST [Suspect]
     Indication: OPEN ANGLE GLAUCOMA
     Route: 047
     Dates: start: 20110101
  8. GLIMEPIRIDE [Concomitant]

REACTIONS (2)
  - EYE IRRITATION [None]
  - EYE PRURITUS [None]
